FAERS Safety Report 7755879 (Version 3)
Quarter: 2015Q4

REPORT INFORMATION
  Report Type: Spontaneous
  Country: FR (occurrence: FR)
  Receive Date: 20101220
  Receipt Date: 20151113
  Transmission Date: 20160305
  Serious: Yes (Congenital Anomaly)
  Sender: FDA-Public Use
  Company Number: BVT-000684

PATIENT
  Sex: Female
  Weight: .62 kg

DRUGS (1)
  1. KINERET [Suspect]
     Active Substance: ANAKINRA
     Indication: STILL^S DISEASE ADULT ONSET

REACTIONS (4)
  - Congenital central nervous system anomaly [Fatal]
  - Brain malformation [Fatal]
  - Exposure via father [Fatal]
  - Abortion induced [Fatal]

NARRATIVE: CASE EVENT DATE: 2010
